FAERS Safety Report 18320024 (Version 2)
Quarter: 2021Q2

REPORT INFORMATION
  Report Type: Spontaneous
  Country: US (occurrence: US)
  Receive Date: 20200929
  Receipt Date: 20210415
  Transmission Date: 20210717
  Serious: No
  Sender: FDA-Public Use
  Company Number: US-ASTRAZENECA-2020SE89350

PATIENT
  Sex: Female

DRUGS (3)
  1. IBRANCE [Suspect]
     Active Substance: PALBOCICLIB
     Dosage: 75.0MG UNKNOWN
     Route: 048
     Dates: start: 20200607
  2. FASLODEX [Suspect]
     Active Substance: FULVESTRANT
     Route: 030
  3. IBRANCE [Suspect]
     Active Substance: PALBOCICLIB
     Dosage: 100.0MG UNKNOWN
     Route: 048
     Dates: start: 20200626

REACTIONS (2)
  - Arthralgia [Unknown]
  - Joint stiffness [Not Recovered/Not Resolved]
